FAERS Safety Report 9894843 (Version 1)
Quarter: 2014Q1

REPORT INFORMATION
  Report Type: Spontaneous
  Country: US (occurrence: US)
  Receive Date: 20140213
  Receipt Date: 20140213
  Transmission Date: 20141002
  Serious: Yes (Hospitalization)
  Sender: FDA-Public Use
  Company Number: US-TEVA-462448USA

PATIENT
  Age: 65 Year
  Sex: Male
  Weight: 53.6 kg

DRUGS (28)
  1. WARFARIN [Suspect]
     Dosage: ON DAY 1
     Route: 065
  2. WARFARIN [Interacting]
     Dosage: ON DAY 2
     Route: 065
  3. WARFARIN [Interacting]
     Dosage: ON DAY 3
     Route: 065
  4. WARFARIN [Interacting]
     Dosage: ON DAY 4
     Route: 065
  5. WARFARIN [Interacting]
     Dosage: ON DAY 5-7
     Route: 065
  6. WARFARIN [Interacting]
     Dosage: ON DAY 8
     Route: 065
  7. WARFARIN [Interacting]
     Dosage: ON DAY 9
     Route: 065
  8. WARFARIN [Interacting]
     Dosage: 3 MILLIGRAM DAILY;
  9. WARFARIN [Interacting]
     Dosage: 5 MILLIGRAM DAILY;
  10. WARFARIN [Interacting]
     Dosage: 3.5 MILLIGRAM DAILY;
  11. ASCORBIC ACID [Interacting]
     Dosage: ONCE ON DAY OF ADMISSION, THEN TWICE DAILY
     Route: 048
  12. ASCORBIC ACID [Interacting]
     Dosage: DAYS 1-7
     Route: 048
  13. AMLODIPINE [Concomitant]
     Dosage: 2.5 MILLIGRAM DAILY;
     Route: 048
  14. ASPIRIN [Concomitant]
     Dosage: 81 MILLIGRAM DAILY;
     Route: 048
  15. CARVEDILOL [Concomitant]
     Route: 048
  16. ESOMEPRAZOLE [Concomitant]
     Dosage: 40 MILLIGRAM DAILY;
     Route: 048
  17. FUROSEMIDE [Concomitant]
     Dosage: INCREASED TO 80MG DAILY UPON HOSPITALISATION
     Route: 048
  18. LORAZEPAM [Concomitant]
     Dosage: .5 MILLIGRAM DAILY; AT BEDTIME AS NEEDED
     Route: 048
  19. LOSARTAN [Concomitant]
     Dosage: 50 MILLIGRAM DAILY;
     Route: 048
  20. MAGNESIUM [Concomitant]
     Dosage: 400 MILLIGRAM DAILY;
     Route: 048
  21. NICOTINE [Concomitant]
     Dosage: 14 MILLIGRAM DAILY;
     Route: 062
  22. SIMVASTATIN [Concomitant]
     Dosage: 10 MILLIGRAM DAILY; AT BEDTIME
     Route: 048
  23. TIOTROPIUM BROMIDE [Concomitant]
     Dosage: 18 MICROGRAM DAILY;
     Route: 055
  24. VITAMIN D [Concomitant]
     Dosage: 1 DOSAGE FORMS DAILY; 400U
     Route: 048
  25. ENOXAPARIN SODIUM [Concomitant]
     Dosage: DECREASED ON DAY 2
     Route: 058
  26. ENOXAPARIN SODIUM [Concomitant]
     Dosage: FROM DAY 2- DAY 8
     Route: 058
  27. ENOXAPARIN SODIUM [Concomitant]
     Dosage: ON DAY 9
     Route: 058
  28. IRON [Concomitant]
     Indication: MINERAL SUPPLEMENTATION
     Route: 048

REACTIONS (2)
  - Drug resistance [Recovered/Resolved]
  - Drug interaction [Recovered/Resolved]
